FAERS Safety Report 16577436 (Version 1)
Quarter: 2019Q3

REPORT INFORMATION
  Report Type: Spontaneous
  Country: FR (occurrence: FR)
  Receive Date: 20190716
  Receipt Date: 20190716
  Transmission Date: 20191004
  Serious: Yes (Hospitalization)
  Sender: FDA-Public Use
  Company Number: FR-PFIZER INC-2019300585

PATIENT
  Age: 79 Year
  Sex: Male

DRUGS (26)
  1. DIFFU K [Suspect]
     Active Substance: POTASSIUM CHLORIDE
     Indication: HYPOKALAEMIA
     Dosage: 1.8 G, 1X/DAY
     Route: 048
     Dates: start: 20190605
  2. METRONIDAZOLE. [Suspect]
     Active Substance: METRONIDAZOLE
     Indication: INFECTION
     Dosage: 500 MG, 1X/DAY
     Route: 048
     Dates: start: 20190522, end: 20190605
  3. FRAXIPARINE [Suspect]
     Active Substance: NADROPARIN CALCIUM
     Indication: THROMBOSIS PROPHYLAXIS
     Dosage: UNK
     Route: 058
     Dates: start: 20190605
  4. LOXEN [NICARDIPINE HYDROCHLORIDE] [Concomitant]
     Active Substance: NICARDIPINE HYDROCHLORIDE
     Dosage: UNK
  5. MOVENTIG [Suspect]
     Active Substance: NALOXEGOL OXALATE
     Indication: CONSTIPATION
     Dosage: 25 MG, 1X/DAY
     Route: 048
     Dates: start: 20190605
  6. INSULIN GLARGINE [Concomitant]
     Active Substance: INSULIN GLARGINE
     Dosage: UNK
  7. GAVISCON [ALGINIC ACID;ALUMINIUM HYDROXIDE;SODIUM BICARBONATE] [Concomitant]
     Dosage: UNK
  8. PRAVASTATIN SODIUM. [Concomitant]
     Active Substance: PRAVASTATIN SODIUM
     Dosage: UNK
  9. INEXIUM [Suspect]
     Active Substance: ESOMEPRAZOLE
     Indication: GASTROOESOPHAGEAL REFLUX DISEASE
     Dosage: 20 MG, 1X/DAY
     Route: 048
     Dates: end: 20190605
  10. REPAGLINIDE. [Suspect]
     Active Substance: REPAGLINIDE
     Indication: DIABETES MELLITUS
     Dosage: 0.5 MG, 1X/DAY
     Route: 048
     Dates: start: 20190605
  11. KARDEGIC [Concomitant]
     Active Substance: ASPIRIN DL-LYSINE
     Dosage: UNK
  12. ESIDREX [Concomitant]
     Active Substance: HYDROCHLOROTHIAZIDE
     Dosage: UNK
  13. HYPERIUM [Concomitant]
     Active Substance: RILMENIDINE PHOSPHATE
     Dosage: UNK
  14. ATENOLOL. [Suspect]
     Active Substance: ATENOLOL
     Dosage: 200 MG, 1X/DAY
     Route: 048
     Dates: end: 20190605
  15. VALSARTAN. [Concomitant]
     Active Substance: VALSARTAN
     Dosage: UNK
  16. INDOMETACIN [Concomitant]
     Active Substance: INDOMETHACIN
     Dosage: UNK
  17. ACTISKENAN [Suspect]
     Active Substance: MORPHINE SULFATE
     Indication: PAIN
     Dosage: 10 MG SI BESOIN
     Route: 048
  18. LEXOMIL [Suspect]
     Active Substance: BROMAZEPAM
     Indication: ANXIETY
     Dosage: 1/4 - 0 - 1/2 ROCHE
     Route: 048
     Dates: end: 20190605
  19. NATISPRAY [Suspect]
     Active Substance: NITROGLYCERIN
     Indication: ANGINA PECTORIS
     Dosage: 15.0UG/INHAL UNKNOWN
     Route: 060
  20. ALLOPURINOL. [Concomitant]
     Active Substance: ALLOPURINOL
     Dosage: UNK
  21. DUROGESIC [Suspect]
     Active Substance: FENTANYL
     Indication: PAIN
     Dosage: 25UG/INHAL DAILY
     Route: 055
  22. GEMCITABINE HYDROCHLORIDE. [Suspect]
     Active Substance: GEMCITABINE HYDROCHLORIDE
     Indication: PANCREATIC CARCINOMA
     Dosage: UNK
     Route: 042
     Dates: start: 201905
  23. CIPROFLOXACIN. [Suspect]
     Active Substance: CIPROFLOXACIN
     Indication: INFECTION
     Dosage: 500 MG, 1X/DAY
     Route: 048
     Dates: start: 20190522, end: 20190605
  24. DOLIPRANE [Suspect]
     Active Substance: ACETAMINOPHEN
     Indication: PAIN
     Dosage: SI BESOIN
     Route: 048
  25. INSULIN [Suspect]
     Active Substance: INSULIN NOS
     Indication: DIABETES MELLITUS
     Dosage: UNK
     Route: 058
     Dates: end: 20190605
  26. SERESTA [Suspect]
     Active Substance: OXAZEPAM
     Indication: ANXIETY
     Dosage: 20 MG, 1X/DAY
     Route: 048
     Dates: start: 20190605

REACTIONS (1)
  - Confusional state [Not Recovered/Not Resolved]

NARRATIVE: CASE EVENT DATE: 20190605
